FAERS Safety Report 9940864 (Version 1)
Quarter: 2014Q1

REPORT INFORMATION
  Report Type: Spontaneous
  Country: US (occurrence: US)
  Receive Date: 20140303
  Receipt Date: 20140303
  Transmission Date: 20141002
  Serious: Yes (Hospitalization)
  Sender: FDA-Public Use
  Company Number: US-PFIZER INC-2014057544

PATIENT
  Age: 69 Year
  Sex: Male
  Weight: 68 kg

DRUGS (1)
  1. INLYTA [Suspect]
     Indication: LUNG NEOPLASM MALIGNANT
     Dosage: 1 MG TABLET, 3 TABLETS BY MOUTH EVERY 12 HOURS WITH A GLASS OF WATER
     Route: 048
     Dates: start: 20131015, end: 20140210

REACTIONS (4)
  - Clostridium difficile infection [Unknown]
  - Dysphonia [Unknown]
  - Dizziness [Unknown]
  - Blood pressure increased [Unknown]
